FAERS Safety Report 21417846 (Version 1)
Quarter: 2022Q4

REPORT INFORMATION
  Report Type: Spontaneous
  Country: US (occurrence: US)
  Receive Date: 20221006
  Receipt Date: 20221006
  Transmission Date: 20230113
  Serious: Yes (Life-Threatening)
  Sender: FDA-Public Use
  Company Number: US-ELI_LILLY_AND_COMPANY-US202209013096

PATIENT
  Sex: Male

DRUGS (1)
  1. BAQSIMI [Suspect]
     Active Substance: GLUCAGON
     Indication: Product used for unknown indication
     Dosage: 3 MG, UNKNOWN
     Route: 065

REACTIONS (1)
  - Respiratory arrest [Recovered/Resolved]
